FAERS Safety Report 21530735 (Version 1)
Quarter: 2022Q4

REPORT INFORMATION
  Report Type: Spontaneous
  Country: US (occurrence: None)
  Receive Date: 20221028
  Receipt Date: 20221028
  Transmission Date: 20230113
  Serious: Yes (Hospitalization)
  Sender: FDA-Public Use
  Company Number: None

PATIENT
  Sex: Male
  Weight: 97.98 kg

DRUGS (15)
  1. ABIRATERONE ACETATE [Suspect]
     Active Substance: ABIRATERONE ACETATE
     Indication: Prostate cancer
     Dosage: FREQUENCY : DAILY;?
     Route: 048
  2. ALBUTEROL [Concomitant]
  3. ALUMINA-MAGNESIA-SIMETHICONE [Concomitant]
  4. CASODEX [Concomitant]
  5. CORTISONE [Concomitant]
  6. ELIQUIS [Concomitant]
  7. FLOMAX [Concomitant]
  8. IPRATROPLUM AND ALBUTEROL [Concomitant]
  9. LISINOPRIL [Concomitant]
  10. LITHIUM [Concomitant]
  11. TYLENOL 8 HOUR ARTHRITIS PAIN [Concomitant]
  12. VITAMIN B12 [Concomitant]
  13. VITAMIN C [Concomitant]
  14. VITAMIN D3 [Concomitant]
  15. ZOFRAN [Concomitant]

REACTIONS (3)
  - Pneumonia [None]
  - Asthenia [None]
  - Fall [None]
